FAERS Safety Report 19804762 (Version 1)
Quarter: 2021Q3

REPORT INFORMATION
  Report Type: Spontaneous
  Country: US (occurrence: US)
  Receive Date: 20210908
  Receipt Date: 20210908
  Transmission Date: 20211014
  Serious: No
  Sender: FDA-Public Use
  Company Number: US-TEVA-2021-US-1951557

PATIENT
  Sex: Female
  Weight: 57 kg

DRUGS (39)
  1. TAMOXIFEN [Suspect]
     Active Substance: TAMOXIFEN
     Indication: BREAST CANCER FEMALE
     Dosage: 20 MILLIGRAM DAILY;
     Route: 048
     Dates: start: 20141112, end: 20150510
  2. ZOLPIDEM TARTRATE. [Concomitant]
     Active Substance: ZOLPIDEM TARTRATE
     Indication: INSOMNIA
     Dosage: 10 MILLIGRAM DAILY; CONTINUING, NIGHT
     Route: 048
     Dates: start: 20110101
  3. NEULASTA [Concomitant]
     Active Substance: PEGFILGRASTIM
     Dosage: ON 1?MAY?2014, 22?MAY?2014, 12?JUN?2014, 3?JUL?2014, 24?JUL?2014, 14?AUG?2014
  4. VENLAFAXINE HYDROCHLORIDE ER [Concomitant]
     Active Substance: VENLAFAXINE HYDROCHLORIDE
     Indication: DEPRESSION
     Dates: start: 20110101
  5. SIMVASTATIN. [Concomitant]
     Active Substance: SIMVASTATIN
     Dosage: 20 MILLIGRAM DAILY;
  6. PROCHLORPERAZINE. [Concomitant]
     Active Substance: PROCHLORPERAZINE
     Dosage: 6CYCLES, ONCE 3 WEEKS ON 30?APR?2014, 21?MAY?2014, 11?JUN?2014, 2?JUL?2014, 23?JUL?2014, 13?AUG?2014
  7. TAMOXIFEN [Suspect]
     Active Substance: TAMOXIFEN
     Route: 065
  8. OXYCODONE?ACETAMINOPHEN [Concomitant]
     Active Substance: ACETAMINOPHEN\OXYCODONE HYDROCHLORIDE
     Indication: NECK PAIN
     Dosage: CONTINUING 5?125MG ONCE/6 HOURS
     Route: 048
     Dates: start: 20140717
  9. GABAPENTIN. [Concomitant]
     Active Substance: GABAPENTIN
     Dosage: CONTINUING
     Dates: start: 20110101
  10. SARNA (PRAMOXINE HYDROCHLORIDE) [Concomitant]
     Active Substance: PRAMOXINE HYDROCHLORIDE
     Dates: start: 20140211
  11. ACICLOVIR [Concomitant]
     Active Substance: ACYCLOVIR
     Dosage: 1600 MILLIGRAM DAILY; AS REQUIRED
  12. FENTANYL TRANSDERMAL SYSTEM [Concomitant]
     Active Substance: FENTANYL
     Indication: CANCER PAIN
  13. METOPROLOL TARTRATE. [Concomitant]
     Active Substance: METOPROLOL TARTRATE
     Dosage: 25 MILLIGRAM DAILY;
     Route: 048
  14. LORAZEPAM. [Concomitant]
     Active Substance: LORAZEPAM
  15. TRIAMCINOLONE [Concomitant]
     Active Substance: TRIAMCINOLONE
     Indication: VITILIGO
     Route: 061
  16. OXYCODONE?ACETAMINOPHEN [Concomitant]
     Active Substance: ACETAMINOPHEN\OXYCODONE HYDROCHLORIDE
     Indication: INSOMNIA
  17. OLANZAPINE. [Concomitant]
     Active Substance: OLANZAPINE
     Dosage: CONTINUING
     Dates: start: 20110101
  18. SPIRONOLACTONE. [Concomitant]
     Active Substance: SPIRONOLACTONE
     Indication: ANDROGENETIC ALOPECIA
     Dosage: CONTINUING
     Dates: start: 20110101
  19. ASPIRIN. [Concomitant]
     Active Substance: ASPIRIN
     Indication: ELECTROCARDIOGRAM ABNORMAL
     Dosage: 81 MILLIGRAM DAILY;
     Route: 048
  20. TOPAMAX [Concomitant]
     Active Substance: TOPIRAMATE
     Indication: NECK PAIN
     Dosage: 50 MILLIGRAM DAILY; BED TIME, CONTINUING
     Route: 048
     Dates: start: 20120101
  21. IMITREX [Concomitant]
     Active Substance: SUMATRIPTAN SUCCINATE
  22. DIAZEPAM. [Concomitant]
     Active Substance: DIAZEPAM
     Dosage: 5 MILLIGRAM DAILY;
     Route: 048
     Dates: start: 20140601, end: 20140615
  23. FERROUS SULFATE. [Concomitant]
     Active Substance: FERROUS SULFATE
     Dosage: 325 MILLIGRAM DAILY;
     Route: 048
  24. SYNTHROID [Concomitant]
     Active Substance: LEVOTHYROXINE SODIUM
     Dosage: 150 MICROGRAM DAILY; CONTINUING
     Route: 048
  25. DEXAMETHASONE. [Concomitant]
     Active Substance: DEXAMETHASONE
     Dosage: 16 MILLIGRAM DAILY; 6CYCLES, ONCE 3 WEEKS WITH CHEMOTHERAPY
  26. VENLAFAXINE HYDROCHLORIDE ER [Concomitant]
     Active Substance: VENLAFAXINE HYDROCHLORIDE
     Dates: start: 20110101
  27. OXYCODONE [Concomitant]
     Active Substance: OXYCODONE
     Dosage: CONTINUING
     Dates: start: 20110101
  28. LISINOPRIL HCTZ [Concomitant]
     Active Substance: HYDROCHLOROTHIAZIDE\LISINOPRIL
     Dosage: CONTINUING
     Dates: start: 20110101
  29. ALPRAZOLAM. [Concomitant]
     Active Substance: ALPRAZOLAM
     Route: 048
     Dates: start: 20140617
  30. MUPIROCIN. [Concomitant]
     Active Substance: MUPIROCIN
     Dates: start: 20140607
  31. FENTANYL TRANSDERMAL SYSTEM [Concomitant]
     Active Substance: FENTANYL
     Indication: NECK PAIN
     Route: 062
     Dates: start: 20140524
  32. BIOTIN [Concomitant]
     Active Substance: BIOTIN
     Dosage: 1 DOSAGE FORMS DAILY;
     Route: 048
  33. SYNTHROID [Concomitant]
     Active Substance: LEVOTHYROXINE SODIUM
     Indication: HYPOTHYROIDISM
     Dosage: 75 MICROGRAM DAILY; CONTINUING
     Route: 048
     Dates: start: 20120301
  34. VITAMIN D [Concomitant]
     Active Substance: VITAMIN D NOS
     Indication: VITAMIN D DEFICIENCY
     Route: 048
     Dates: start: 20130703
  35. VENLAFAXINE HYDROCHLORIDE ER [Concomitant]
     Active Substance: VENLAFAXINE HYDROCHLORIDE
     Dosage: 37.5 MILLIGRAM DAILY;
     Route: 048
  36. VICODIN [Concomitant]
     Active Substance: ACETAMINOPHEN\HYDROCODONE BITARTRATE
     Indication: NECK PAIN
     Dosage: 5MG/500MG
     Route: 048
  37. CYCLOBENZAPRINE HCL [Concomitant]
     Active Substance: CYCLOBENZAPRINE HYDROCHLORIDE
     Indication: BACK PAIN
     Dosage: CONTINUING, 1/2 TO 1 TABLET
     Route: 048
     Dates: start: 20120201
  38. TRIMTERENE?HCTZ [Concomitant]
     Dosage: 1 DOSAGE FORMS DAILY; 37.5?25MG
     Route: 048
     Dates: end: 20131127
  39. NAPROXEN. [Concomitant]
     Active Substance: NAPROXEN
     Dosage: 1000 MILLIGRAM DAILY; CONTINUING AS REQUIRED
     Route: 048
     Dates: start: 20110101

REACTIONS (2)
  - Rash [Unknown]
  - Drug hypersensitivity [Unknown]
